FAERS Safety Report 6474593-7 (Version None)
Quarter: 2009Q4

REPORT INFORMATION
  Report Type: 
  Country: None (occurrence: None)
  Receive Date: 20091204
  Receipt Date: 20090319
  Transmission Date: 20100525
  Serious: Yes (Other)
  Sender: FDA-Public Use
  Company Number: US-ELI_LILLY_AND_COMPANY-US200901003014

PATIENT
  Age: 46 Year
  Sex: Male

DRUGS (9)
  1. BYETTA [Suspect]
     Indication: TYPE 2 DIABETES MELLITUS
     Dosage: UNK, UNKNOWN
     Route: 058
     Dates: start: 20081202
  2. BYETTA [Suspect]
     Dosage: 10 UG, 2/D
     Route: 058
     Dates: end: 20081201
  3. METFORMIN HCL [Concomitant]
     Dosage: 1000 MG, 2/D
     Route: 048
     Dates: start: 20081202
  4. AMARYL [Concomitant]
     Dosage: 4 MG, 2/D
     Route: 048
     Dates: start: 20081002
  5. XANAX [Concomitant]
     Dosage: 1 MG, EACH EVENING
     Route: 048
     Dates: start: 20081202
  6. LIPITOR [Concomitant]
     Dosage: 40 MG, EACH EVENING
     Dates: start: 20081202
  7. LEXAPRO [Concomitant]
     Dosage: 20 MG, UNK
     Dates: start: 20081202
  8. ALTACE [Concomitant]
     Dosage: 2.5 MG, DAILY (1/D)
     Route: 048
     Dates: start: 20081202
  9. BACTROBAN [Concomitant]
     Dates: start: 20080829

REACTIONS (2)
  - LIVER FUNCTION TEST ABNORMAL [None]
  - PANCREATITIS ACUTE [None]
